FAERS Safety Report 10275805 (Version 1)
Quarter: 2014Q3

REPORT INFORMATION
  Report Type: Spontaneous
  Country: GB (occurrence: GB)
  Receive Date: 20140703
  Receipt Date: 20140703
  Transmission Date: 20150326
  Serious: Yes (Other)
  Sender: FDA-Public Use
  Company Number: PHFR2014GB004653

PATIENT
  Sex: Male

DRUGS (1)
  1. ZOMETA [Suspect]
     Active Substance: ZOLEDRONIC ACID
     Dosage: UNK UKN, UNK

REACTIONS (6)
  - Poor quality sleep [Unknown]
  - Cough [Unknown]
  - Fall [Unknown]
  - Joint injury [Unknown]
  - Pain [Not Recovered/Not Resolved]
  - Dyspnoea [Unknown]
